FAERS Safety Report 25652231 (Version 1)
Quarter: 2025Q3

REPORT INFORMATION
  Report Type: Spontaneous
  Country: US (occurrence: US)
  Receive Date: 20250807
  Receipt Date: 20250807
  Transmission Date: 20251021
  Serious: No
  Sender: SANOFI AVENTIS
  Company Number: US-SA-2025SA229484

PATIENT
  Sex: Male

DRUGS (8)
  1. DUPIXENT [Suspect]
     Active Substance: DUPILUMAB
     Indication: Eosinophilic oesophagitis
     Dosage: 300 MG, QW
     Route: 058
     Dates: start: 20230822
  2. ALBUTEROL SULFATE [Concomitant]
     Active Substance: ALBUTEROL SULFATE
  3. BUDESONIDE [Concomitant]
     Active Substance: BUDESONIDE
  4. LEVOTHYROXINE [Concomitant]
     Active Substance: LEVOTHYROXINE
  5. METHYLPHENIDATE [Concomitant]
     Active Substance: METHYLPHENIDATE
  6. MONTELUKAST SODIUM [Concomitant]
     Active Substance: MONTELUKAST SODIUM
  7. NORDITROPIN [Concomitant]
     Active Substance: SOMATROPIN
  8. RIZATRIPTAN [Concomitant]
     Active Substance: RIZATRIPTAN

REACTIONS (2)
  - Drug ineffective [Unknown]
  - Product dose omission in error [Unknown]
